FAERS Safety Report 7779081-3 (Version None)
Quarter: 2011Q3

REPORT INFORMATION
  Report Type: 
  Country: None (occurrence: None)
  Receive Date: 20110926
  Receipt Date: 20110921
  Transmission Date: 20111222
  Serious: Yes (Hospitalization, Other)
  Sender: FDA-Public Use
  Company Number: CA-ABBOTT-11P-028-0857213-00

PATIENT
  Sex: Female
  Weight: 52.21 kg

DRUGS (3)
  1. HUMIRA [Suspect]
     Indication: PSORIATIC ARTHROPATHY
     Route: 058
     Dates: start: 20080905, end: 20100101
  2. MATERNA [Concomitant]
     Indication: PREGNANCY
     Route: 048
     Dates: start: 20110601, end: 20110801
  3. FOLIC ACID [Concomitant]
     Indication: PREGNANCY
     Route: 048
     Dates: start: 20110601, end: 20110801

REACTIONS (2)
  - BENIGN HYDATIDIFORM MOLE [None]
  - ANAPHYLACTIC SHOCK [None]
